FAERS Safety Report 16912032 (Version 1)
Quarter: 2019Q4

REPORT INFORMATION
  Report Type: Spontaneous
  Country: FR (occurrence: FR)
  Receive Date: 20191014
  Receipt Date: 20191014
  Transmission Date: 20200122
  Serious: Yes (Hospitalization)
  Sender: FDA-Public Use
  Company Number: FR-ROCHE-2434367

PATIENT
  Age: 29 Year
  Sex: Male
  Weight: 70 kg

DRUGS (8)
  1. METHOTREXATE. [Suspect]
     Active Substance: METHOTREXATE
     Indication: BURKITT^S LYMPHOMA
     Dosage: MOST RECENT DOSE ON 05/SEP/2018.
     Route: 041
     Dates: start: 20180818
  2. ENDOXAN [CYCLOPHOSPHAMIDE] [Suspect]
     Active Substance: CYCLOPHOSPHAMIDE
     Indication: BURKITT^S LYMPHOMA
     Dosage: MOST RECENT DOSE ON 08/SEP/2018.
     Route: 041
     Dates: start: 20180819
  3. MABTHERA [Suspect]
     Active Substance: RITUXIMAB
     Indication: BURKITT^S LYMPHOMA
     Dosage: MOST RECENT DOSE ON 10/SEP/2018.
     Route: 041
     Dates: start: 20180817
  4. VINCRISTINE HOSPIRA [Suspect]
     Active Substance: VINCRISTINE
     Indication: BURKITT^S LYMPHOMA
     Dosage: MOST RECENT DOSE ON 10/SEP/2018.
     Route: 041
     Dates: start: 20180818
  5. DOXORUBICINE ACCORD [Suspect]
     Active Substance: DOXORUBICIN
     Indication: BURKITT^S LYMPHOMA
     Dosage: MOST RECENT DOSE ON 06/SEP/2018.
     Route: 041
     Dates: start: 20180819
  6. ARACYTINE [Suspect]
     Active Substance: CYTARABINE
     Indication: BURKITT^S LYMPHOMA
     Dosage: MOST RECENT DOSE ON 10/SEP/2018.
     Route: 024
     Dates: start: 20180819
  7. HYDROCORTISONE ACETATE. [Suspect]
     Active Substance: HYDROCORTISONE ACETATE
     Indication: BURKITT^S LYMPHOMA
     Dosage: MOST RECENT DOSE ON 10/SEP/2018.
     Route: 024
     Dates: start: 20180819
  8. METHOTREXATE BIODIM [Suspect]
     Active Substance: METHOTREXATE
     Indication: BURKITT^S LYMPHOMA
     Dosage: MOST RECENT DOSE ON 10/SEP/2018.
     Route: 024
     Dates: start: 20180819

REACTIONS (2)
  - Mucosal inflammation [Recovered/Resolved]
  - Bone marrow failure [Recovered/Resolved]

NARRATIVE: CASE EVENT DATE: 20180827
